FAERS Safety Report 10134404 (Version 8)
Quarter: 2015Q2

REPORT INFORMATION
  Report Type: Spontaneous
  Country: US (occurrence: US)
  Receive Date: 20140428
  Receipt Date: 20150410
  Transmission Date: 20150821
  Serious: Yes (Other)
  Sender: FDA-Public Use
  Company Number: US-PFIZER INC-2014111581

PATIENT
  Age: 51 Year
  Sex: Female
  Weight: 55 kg

DRUGS (4)
  1. LEVOXYL [Suspect]
     Active Substance: LEVOTHYROXINE SODIUM
     Dosage: 75 ?G, 1X/DAY
     Route: 048
     Dates: start: 20140425
  2. HYDROCORTISONE BUTYRATE. [Concomitant]
     Active Substance: HYDROCORTISONE BUTYRATE
     Indication: DERMATITIS
     Dosage: 0.1 %, 1X/DAY
     Dates: start: 20140408, end: 201405
  3. LEVOXYL [Suspect]
     Active Substance: LEVOTHYROXINE SODIUM
     Indication: HYPOTHYROIDISM
     Dosage: 150 UG, DAILY
     Route: 048
     Dates: start: 2008
  4. LEVOXYL [Suspect]
     Active Substance: LEVOTHYROXINE SODIUM
     Dosage: UNK

REACTIONS (35)
  - Throat irritation [Unknown]
  - Weight decreased [Unknown]
  - Abdominal pain [Unknown]
  - Lethargy [Recovered/Resolved]
  - Speech disorder [Unknown]
  - Dysphagia [Unknown]
  - Abdominal pain upper [Recovered/Resolved]
  - Expired product administered [Unknown]
  - Gait disturbance [Recovered/Resolved]
  - Asthma [Not Recovered/Not Resolved]
  - Oropharyngeal pain [Unknown]
  - Eating disorder [Unknown]
  - Influenza like illness [Unknown]
  - Nervousness [Unknown]
  - Heart rate increased [Recovered/Resolved]
  - Dyspepsia [Recovered/Resolved]
  - Retching [Recovered/Resolved]
  - Gastrooesophageal reflux disease [Recovering/Resolving]
  - Vaginal haemorrhage [Unknown]
  - Abdominal discomfort [Unknown]
  - Memory impairment [Unknown]
  - Decreased appetite [Unknown]
  - Fatigue [Unknown]
  - Musculoskeletal stiffness [Unknown]
  - Product taste abnormal [Unknown]
  - Nausea [Recovered/Resolved]
  - Muscle spasms [Recovered/Resolved]
  - Restrictive pulmonary disease [Not Recovered/Not Resolved]
  - Gastric ulcer [Unknown]
  - Dizziness [Recovered/Resolved]
  - Tremor [Unknown]
  - Burning sensation [Unknown]
  - Dry mouth [Unknown]
  - Headache [Recovered/Resolved]
  - Dyspepsia [Recovering/Resolving]

NARRATIVE: CASE EVENT DATE: 2014
